FAERS Safety Report 10056115 (Version 1)
Quarter: 2014Q2

REPORT INFORMATION
  Report Type: Report from Study
  Country: DE (occurrence: DE)
  Receive Date: 20140403
  Receipt Date: 20140403
  Transmission Date: 20141212
  Serious: Yes (Hospitalization)
  Sender: FDA-Public Use
  Company Number: DE-SA-2014SA039221

PATIENT
  Age: 74 Year
  Sex: Male
  Weight: 76 kg

DRUGS (7)
  1. MULTAQ [Suspect]
     Indication: ATRIAL FIBRILLATION
     Dates: start: 20120112
  2. BETA BLOCKING AGENTS [Concomitant]
  3. VIT K ANTAGONISTS [Concomitant]
     Indication: THROMBOSIS PROPHYLAXIS
  4. BISOPROLOL [Concomitant]
  5. TRIMIPRAMINE [Concomitant]
  6. ATARAX [Concomitant]
  7. L-THYROXIN [Concomitant]

REACTIONS (1)
  - Atrial fibrillation [Unknown]
